FAERS Safety Report 7129776-X (Version None)
Quarter: 2010Q4

REPORT INFORMATION
  Report Type: 
  Country: None (occurrence: None)
  Receive Date: 20101130
  Receipt Date: 20101124
  Transmission Date: 20110411
  Serious: Yes (Hospitalization, Disabling, Other)
  Sender: FDA-Public Use
  Company Number: US-MERCK-0907USA00160

PATIENT
  Age: 57 Year
  Sex: Female

DRUGS (6)
  1. FOSAMAX [Suspect]
     Indication: OSTEOPOROSIS
     Route: 048
     Dates: start: 19951001, end: 20051001
  2. FOSAMAX [Suspect]
     Route: 048
     Dates: start: 19960401, end: 20020101
  3. FOSAMAX [Suspect]
     Route: 048
     Dates: start: 20020101, end: 20031001
  4. CORTICOSTEROIDS (UNSPECIFIED) [Concomitant]
     Route: 065
     Dates: start: 19610101
  5. ESTROGENS (UNSPECIFIED) [Concomitant]
     Indication: MENOPAUSE
     Route: 065
     Dates: start: 19730101, end: 20010101
  6. PREDNISONE [Concomitant]
     Indication: PEMPHIGUS
     Route: 065
     Dates: start: 19590101

REACTIONS (34)
  - ADRENAL INSUFFICIENCY [None]
  - ANKLE FRACTURE [None]
  - ARTHRALGIA [None]
  - BONE DISORDER [None]
  - BONE PAIN [None]
  - CATARACT [None]
  - DERMATITIS CONTACT [None]
  - DYSPHAGIA [None]
  - DYSPHONIA [None]
  - DYSPNOEA [None]
  - EXTRASKELETAL OSSIFICATION [None]
  - FALL [None]
  - FEMUR FRACTURE [None]
  - FOOT FRACTURE [None]
  - GASTROENTERITIS VIRAL [None]
  - HEAD INJURY [None]
  - IRON DEFICIENCY [None]
  - JOINT EFFUSION [None]
  - LOW TURNOVER OSTEOPATHY [None]
  - MUSCULOSKELETAL CHEST PAIN [None]
  - MUSCULOSKELETAL PAIN [None]
  - NAUSEA [None]
  - OSTEOARTHRITIS [None]
  - OSTEONECROSIS [None]
  - OSTEOPOROSIS [None]
  - PAIN IN EXTREMITY [None]
  - PEMPHIGUS [None]
  - RIB FRACTURE [None]
  - ROAD TRAFFIC ACCIDENT [None]
  - SKIN LESION [None]
  - STRESS FRACTURE [None]
  - SYNCOPE [None]
  - ULNA FRACTURE [None]
  - UPPER LIMB FRACTURE [None]
